FAERS Safety Report 5021271-7 (Version None)
Quarter: 2006Q2

REPORT INFORMATION
  Report Type: 
  Country: None (occurrence: None)
  Receive Date: 20060414
  Receipt Date: 20060221
  Transmission Date: 20061013
  Serious: No
  Sender: FDA-Public Use
  Company Number: 2006SP000855

PATIENT
  Age: 60 Year
  Sex: Male
  Weight: 90.7194 kg

DRUGS (2)
  1. LUNESTA [Suspect]
     Indication: INSOMNIA
     Dosage: 1.5 MG;IX;ORAL
     Route: 048
     Dates: start: 20060217, end: 20060217
  2. PAXIL [Concomitant]

REACTIONS (5)
  - DIARRHOEA [None]
  - DYSGEUSIA [None]
  - HYPERHIDROSIS [None]
  - NERVOUSNESS [None]
  - STOMACH DISCOMFORT [None]
